FAERS Safety Report 5945541-0 (Version None)
Quarter: 2008Q4

REPORT INFORMATION
  Report Type: 
  Country: None (occurrence: None)
  Receive Date: 20081107
  Receipt Date: 20081029
  Transmission Date: 20090506
  Serious: Yes (Hospitalization)
  Sender: FDA-Public Use
  Company Number: GB-B.I. PHARMACEUTICALS,INC./RIDGEFIELD-2008-UK-01451UK

PATIENT
  Sex: Male

DRUGS (3)
  1. MIRAPEX [Suspect]
     Indication: PARKINSON'S DISEASE
     Dosage: 1.05MG
     Route: 048
     Dates: start: 20071001
  2. IRON [Concomitant]
  3. ANTIBIOTICS [Concomitant]

REACTIONS (4)
  - ECZEMA [None]
  - GLUCAGONOMA [None]
  - HYPOTENSION [None]
  - WEIGHT DECREASED [None]
